FAERS Safety Report 4918534-X (Version None)
Quarter: 2006Q1

REPORT INFORMATION
  Report Type: 
  Country: None (occurrence: None)
  Receive Date: 20060221
  Receipt Date: 20060221
  Transmission Date: 20060701
  Serious: Yes (Hospitalization, Other)
  Sender: FDA-Public Use
  Company Number: None

PATIENT
  Age: 42 Year
  Sex: Male
  Weight: 106.5953 kg

DRUGS (5)
  1. CORICIDIN D SRT [Suspect]
     Indication: NASOPHARYNGITIS
     Dosage: ORAL
     Route: 048
     Dates: start: 19950101, end: 19990101
  2. TAVIST-D [Suspect]
     Dosage: ORAL
     Route: 048
     Dates: start: 19950101, end: 19950101
  3. RU-TUSS [Suspect]
  4. DIMETAPP [Suspect]
     Dosage: ORAL
     Route: 048
     Dates: start: 19950101, end: 19950101
  5. COMTREX [Concomitant]

REACTIONS (13)
  - AMNESIA [None]
  - APHASIA [None]
  - CEREBRAL HAEMATOMA [None]
  - CEREBROVASCULAR ACCIDENT [None]
  - DISORIENTATION [None]
  - HAEMATOMA [None]
  - HEMIPARESIS [None]
  - HEMIPLEGIA [None]
  - HYDROCEPHALUS [None]
  - INJURY [None]
  - INTRACRANIAL ANEURYSM [None]
  - MENTAL IMPAIRMENT [None]
  - NEUROLOGICAL SYMPTOM [None]
